FAERS Safety Report 5275927-1 (Version None)
Quarter: 2007Q1

REPORT INFORMATION
  Report Type: 
  Country: None (occurrence: None)
  Receive Date: 20070326
  Receipt Date: 20070315
  Transmission Date: 20070707
  Serious: Yes (Other)
  Sender: FDA-Public Use
  Company Number: US-ROCHE-487908

PATIENT
  Age: 49 Year
  Sex: Female

DRUGS (4)
  1. PEGASYS [Suspect]
     Route: 065
     Dates: start: 20061213, end: 20070205
  2. PEGASYS [Suspect]
     Route: 065
     Dates: start: 20070314
  3. COPEGUS [Suspect]
     Route: 065
     Dates: start: 20061213, end: 20070205
  4. COPEGUS [Suspect]
     Route: 065
     Dates: start: 20070314

REACTIONS (3)
  - BLOOD DISORDER [None]
  - RED BLOOD CELL COUNT DECREASED [None]
  - WHITE BLOOD CELL COUNT DECREASED [None]
